FAERS Safety Report 24132377 (Version 1)
Quarter: 2024Q3

REPORT INFORMATION
  Report Type: Spontaneous
  Country: US (occurrence: US)
  Receive Date: 20240724
  Receipt Date: 20240724
  Transmission Date: 20241017
  Serious: Yes (Hospitalization, Other)
  Sender: INCYTE
  Company Number: US-INCYTE CORPORATION-2024IN007675

PATIENT

DRUGS (36)
  1. JAKAFI [Suspect]
     Active Substance: RUXOLITINIB
     Indication: Still^s disease
     Dosage: UNK
     Route: 065
     Dates: end: 202405
  2. JAKAFI [Suspect]
     Active Substance: RUXOLITINIB
     Indication: Autoimmune thyroiditis
  3. JAKAFI [Suspect]
     Active Substance: RUXOLITINIB
     Indication: Eosinophilic oesophagitis
  4. JAKAFI [Suspect]
     Active Substance: RUXOLITINIB
     Indication: Haemophagocytic lymphohistiocytosis
  5. CANAKINUMAB [Concomitant]
     Active Substance: CANAKINUMAB
     Indication: Still^s disease
     Dosage: UNK
     Route: 065
  6. CANAKINUMAB [Concomitant]
     Active Substance: CANAKINUMAB
     Indication: Autoimmune thyroiditis
  7. CANAKINUMAB [Concomitant]
     Active Substance: CANAKINUMAB
     Indication: Eosinophilic oesophagitis
  8. CANAKINUMAB [Concomitant]
     Active Substance: CANAKINUMAB
     Indication: Haemophagocytic lymphohistiocytosis
  9. TOCILIZUMAB [Concomitant]
     Active Substance: TOCILIZUMAB
     Indication: Still^s disease
     Dosage: UNK
     Route: 065
  10. TOCILIZUMAB [Concomitant]
     Active Substance: TOCILIZUMAB
     Indication: Autoimmune thyroiditis
  11. TOCILIZUMAB [Concomitant]
     Active Substance: TOCILIZUMAB
     Indication: Eosinophilic oesophagitis
  12. TOCILIZUMAB [Concomitant]
     Active Substance: TOCILIZUMAB
     Indication: Haemophagocytic lymphohistiocytosis
  13. HUMIRA [Concomitant]
     Active Substance: ADALIMUMAB
     Indication: Still^s disease
     Dosage: UNK
     Route: 065
  14. HUMIRA [Concomitant]
     Active Substance: ADALIMUMAB
     Indication: Autoimmune thyroiditis
  15. HUMIRA [Concomitant]
     Active Substance: ADALIMUMAB
     Indication: Eosinophilic oesophagitis
  16. HUMIRA [Concomitant]
     Active Substance: ADALIMUMAB
     Indication: Haemophagocytic lymphohistiocytosis
  17. ANAKINRA [Concomitant]
     Active Substance: ANAKINRA
     Indication: Still^s disease
     Route: 065
  18. ANAKINRA [Concomitant]
     Active Substance: ANAKINRA
     Indication: Autoimmune thyroiditis
  19. ANAKINRA [Concomitant]
     Active Substance: ANAKINRA
     Indication: Eosinophilic oesophagitis
  20. ANAKINRA [Concomitant]
     Active Substance: ANAKINRA
     Indication: Haemophagocytic lymphohistiocytosis
  21. TOFACITINIB [Concomitant]
     Active Substance: TOFACITINIB
     Indication: Still^s disease
     Dosage: UNK
     Route: 065
  22. TOFACITINIB [Concomitant]
     Active Substance: TOFACITINIB
     Indication: Autoimmune thyroiditis
  23. TOFACITINIB [Concomitant]
     Active Substance: TOFACITINIB
     Indication: Eosinophilic oesophagitis
  24. TOFACITINIB [Concomitant]
     Active Substance: TOFACITINIB
     Indication: Haemophagocytic lymphohistiocytosis
  25. ORENCIA [Concomitant]
     Active Substance: ABATACEPT
     Indication: Still^s disease
     Dosage: UNK
     Route: 065
  26. ORENCIA [Concomitant]
     Active Substance: ABATACEPT
     Indication: Autoimmune thyroiditis
  27. ORENCIA [Concomitant]
     Active Substance: ABATACEPT
     Indication: Eosinophilic oesophagitis
  28. ORENCIA [Concomitant]
     Active Substance: ABATACEPT
     Indication: Haemophagocytic lymphohistiocytosis
  29. ARAVA [Concomitant]
     Active Substance: LEFLUNOMIDE
     Indication: Still^s disease
     Dosage: UNK
     Route: 065
  30. ARAVA [Concomitant]
     Active Substance: LEFLUNOMIDE
     Indication: Autoimmune thyroiditis
  31. ARAVA [Concomitant]
     Active Substance: LEFLUNOMIDE
     Indication: Eosinophilic oesophagitis
  32. ARAVA [Concomitant]
     Active Substance: LEFLUNOMIDE
     Indication: Haemophagocytic lymphohistiocytosis
  33. METHOTREXATE SODIUM [Concomitant]
     Active Substance: METHOTREXATE SODIUM
     Indication: Still^s disease
     Dosage: UNK
     Route: 065
  34. METHOTREXATE SODIUM [Concomitant]
     Active Substance: METHOTREXATE SODIUM
     Indication: Autoimmune thyroiditis
  35. METHOTREXATE SODIUM [Concomitant]
     Active Substance: METHOTREXATE SODIUM
     Indication: Eosinophilic oesophagitis
  36. METHOTREXATE SODIUM [Concomitant]
     Active Substance: METHOTREXATE SODIUM
     Indication: Haemophagocytic lymphohistiocytosis

REACTIONS (5)
  - Still^s disease [Unknown]
  - Haemophagocytic lymphohistiocytosis [Unknown]
  - Condition aggravated [Unknown]
  - Drug ineffective for unapproved indication [Unknown]
  - Off label use [Unknown]

NARRATIVE: CASE EVENT DATE: 20230101
